FAERS Safety Report 8544703-6 (Version None)
Quarter: 2012Q3

REPORT INFORMATION
  Report Type: 
  Country: None (occurrence: None)
  Receive Date: 20120727
  Receipt Date: 20120724
  Transmission Date: 20120928
  Serious: Yes (Death, Hospitalization)
  Sender: FDA-Public Use
  Company Number: ZA-ROCHE-1079180

PATIENT
  Sex: Male

DRUGS (2)
  1. MIRCERA [Suspect]
     Indication: PRODUCT USED FOR UNKNOWN INDICATION
     Dates: start: 20111116
  2. RECORMON [Concomitant]

REACTIONS (6)
  - SEPSIS [None]
  - DISEASE PROGRESSION [None]
  - MALAISE [None]
  - DIABETES MELLITUS [None]
  - RENAL FAILURE CHRONIC [None]
  - HYPERTENSION [None]
